FAERS Safety Report 9386280 (Version 1)
Quarter: 2013Q3

REPORT INFORMATION
  Report Type: Report from Study
  Country: CN (occurrence: CN)
  Receive Date: 20130708
  Receipt Date: 20130708
  Transmission Date: 20140515
  Serious: Yes (Death)
  Sender: FDA-Public Use
  Company Number: CN-ROCHE-1243868

PATIENT
  Sex: 0

DRUGS (5)
  1. MYCOPHENOLATE MOFETIL [Suspect]
     Indication: IMMUNOSUPPRESSION
     Dosage: 1-2 G PER DAY IN 2 INDIVIDUAL DOSES
     Route: 065
  2. CYCLOSPORINE A [Concomitant]
     Indication: IMMUNOSUPPRESSION
     Dosage: 3-6 MG/KG PER DAY
     Route: 065
  3. PREDNISONE [Concomitant]
     Route: 065
  4. BASILIXIMAB [Concomitant]
     Route: 065
  5. METHYLPREDNISOLONE [Concomitant]
     Dosage: 500 MG AFTER ANESTHESIA AND CARDIOPULMONARY BYPASS, ON DAY 1
     Route: 065

REACTIONS (2)
  - Neoplasm malignant [Fatal]
  - Infection [Fatal]
